FAERS Safety Report 9074245 (Version 1)
Quarter: 2013Q1

REPORT INFORMATION
  Report Type: Report from Study
  Country: US (occurrence: US)
  Receive Date: 20130128
  Receipt Date: 20130128
  Transmission Date: 20140127
  Serious: No
  Sender: FDA-Public Use
  Company Number: US-ABBOTT-12P-163-0916297-00

PATIENT
  Sex: Female
  Weight: 66.28 kg

DRUGS (5)
  1. HUMIRA 40 MG/0.8 ML PEN [Suspect]
     Indication: PSORIATIC ARTHROPATHY
     Dates: start: 20120225
  2. ZERTEC [Concomitant]
     Indication: SEASONAL ALLERGY
  3. FISH OIL [Concomitant]
     Indication: PRODUCT USED FOR UNKNOWN INDICATION
  4. MVI [Concomitant]
     Indication: PRODUCT USED FOR UNKNOWN INDICATION
  5. CAL-D [Concomitant]
     Indication: PRODUCT USED FOR UNKNOWN INDICATION

REACTIONS (3)
  - Sinusitis [Recovering/Resolving]
  - Device malfunction [Unknown]
  - Drug dose omission [Unknown]
